FAERS Safety Report 10905579 (Version 3)
Quarter: 2015Q2

REPORT INFORMATION
  Report Type: Spontaneous
  Country: US (occurrence: US)
  Receive Date: 20150311
  Receipt Date: 20150622
  Transmission Date: 20150821
  Serious: Yes (Hospitalization, Other)
  Sender: FDA-Public Use
  Company Number: US-009507513-1109USA00295

PATIENT
  Sex: Female
  Weight: 87.2 kg

DRUGS (4)
  1. FOSAMAX PLUS D [Suspect]
     Active Substance: ALENDRONATE SODIUM\CHOLECALCIFEROL
     Indication: BONE DENSITY DECREASED
     Dosage: 70 MG/5600 MG, QW
     Route: 048
     Dates: start: 20070710, end: 20100629
  2. FOSAMAX [Suspect]
     Active Substance: ALENDRONATE SODIUM
     Indication: OSTEOPOROSIS
     Dosage: 10 MG, UNK
     Route: 048
     Dates: start: 19990706
  3. FOSAMAX [Suspect]
     Active Substance: ALENDRONATE SODIUM
     Dosage: 70 MG, QW
     Route: 048
     Dates: start: 20030114, end: 20070604
  4. ALENDRONATE SODIUM. [Suspect]
     Active Substance: ALENDRONATE SODIUM
     Indication: BONE DENSITY DECREASED
     Dosage: 70 MG, QW
     Route: 048
     Dates: start: 20100707, end: 20101218

REACTIONS (10)
  - Calcium deficiency [Unknown]
  - Upper limb fracture [Unknown]
  - Impaired healing [Unknown]
  - Anaemia postoperative [Unknown]
  - Constipation [Unknown]
  - Femur fracture [Recovered/Resolved]
  - Urinary tract infection [Unknown]
  - Scoliosis [Unknown]
  - Intramedullary rod insertion [Unknown]
  - Thrombocytopenia [Recovering/Resolving]

NARRATIVE: CASE EVENT DATE: 1999
